FAERS Safety Report 4535758-4 (Version None)
Quarter: 2004Q4

REPORT INFORMATION
  Report Type: 
  Country: None (occurrence: None)
  Receive Date: 20041223
  Receipt Date: 20040217
  Transmission Date: 20050328
  Serious: No
  Sender: FDA-Public Use
  Company Number: US-GLAXOSMITHKLINE-A0498537A

PATIENT
  Age: 58 Year
  Sex: Male

DRUGS (4)
  1. FLONASE [Suspect]
     Dosage: 2SPR TWICE PER DAY
     Route: 045
     Dates: start: 19950426
  2. ATENOLOL [Concomitant]
  3. LIPITOR [Concomitant]
  4. ANTIHISTAMINE [Concomitant]
     Route: 065

REACTIONS (1)
  - EPISTAXIS [None]
